FAERS Safety Report 24618921 (Version 1)
Quarter: 2024Q4

REPORT INFORMATION
  Report Type: Spontaneous
  Country: US (occurrence: None)
  Receive Date: 20241114
  Receipt Date: 20241114
  Transmission Date: 20250115
  Serious: No
  Sender: Public
  Company Number: None

PATIENT
  Age: 54 Year
  Sex: Female
  Weight: 161.48 kg

DRUGS (1)
  1. ODOMZO [Suspect]
     Active Substance: SONIDEGIB
     Indication: Basal cell carcinoma
     Dosage: OTHER FREQUENCY : DAILYONEMPTYSTOMACHATLEAST1HRBEFOREOR2HRSAFTER;?
     Dates: start: 202406

REACTIONS (2)
  - Gastrointestinal disorder [None]
  - Therapy interrupted [None]
